FAERS Safety Report 20076195 (Version 1)
Quarter: 2021Q4

REPORT INFORMATION
  Report Type: Spontaneous
  Country: US (occurrence: US)
  Receive Date: 20211116
  Receipt Date: 20211116
  Transmission Date: 20220303
  Serious: No
  Sender: FDA-Public Use
  Company Number: US-NOVOPROD-799110

PATIENT
  Sex: Female

DRUGS (1)
  1. TRESIBA [Suspect]
     Active Substance: INSULIN DEGLUDEC
     Indication: Product used for unknown indication
     Dosage: 34 IU
     Route: 058
     Dates: start: 20210301

REACTIONS (6)
  - Malaise [Unknown]
  - Headache [Unknown]
  - Device failure [Unknown]
  - Product dose omission issue [Unknown]
  - Multiple use of single-use product [Unknown]
  - Needle issue [Unknown]
